FAERS Safety Report 4727754-9 (Version None)
Quarter: 2005Q3

REPORT INFORMATION
  Report Type: 
  Country: None (occurrence: None)
  Receive Date: 20050727
  Receipt Date: 20050721
  Transmission Date: 20060218
  Serious: Yes (Death)
  Sender: FDA-Public Use
  Company Number: 2005FR-00142

PATIENT
  Sex: Male

DRUGS (10)
  1. CIPROFLOXACIN [Suspect]
     Dosage: 250 MG , BID
  2. SPIRIVA [Concomitant]
  3. HARD CAPSULE COMBIVENT UDV 2.5ML [Concomitant]
  4. SERETIDE [Concomitant]
  5. AMLODIPINE [Concomitant]
  6. TRIMETHOPRIM [Concomitant]
  7. FUROSEMIDE SODIUM CHLORIDE [Concomitant]
  8. INSTILLAGEL [Concomitant]
  9. CLORIMAZOLE [Concomitant]
  10. PREDNISOLONE [Concomitant]

REACTIONS (2)
  - CARDIAC FAILURE CONGESTIVE [None]
  - CHRONIC OBSTRUCTIVE PULMONARY DISEASE [None]
